FAERS Safety Report 6051206-X (Version None)
Quarter: 2009Q1

REPORT INFORMATION
  Report Type: 
  Country: None (occurrence: None)
  Receive Date: 20090126
  Receipt Date: 20090116
  Transmission Date: 20090719
  Serious: No
  Sender: FDA-Public Use
  Company Number: CH-ASTRAZENECA-2009PK00410

PATIENT
  Age: 34 Year
  Sex: Female

DRUGS (7)
  1. SEROQUEL [Suspect]
     Route: 048
     Dates: start: 20081003, end: 20081005
  2. SEROQUEL [Suspect]
     Route: 048
     Dates: start: 20081006, end: 20081009
  3. SEROQUEL [Suspect]
     Route: 048
     Dates: start: 20081010
  4. VALPROATE SODIUM [Suspect]
     Route: 048
     Dates: start: 20080815, end: 20080914
  5. VALPROATE SODIUM [Suspect]
     Route: 048
     Dates: start: 20080815, end: 20080928
  6. VALPROATE SODIUM [Suspect]
     Route: 048
     Dates: start: 20080929, end: 20081024
  7. VALPROATE SODIUM [Suspect]
     Route: 048
     Dates: start: 20081025

REACTIONS (1)
  - THROMBOCYTOPENIA [None]
